FAERS Safety Report 7348440-5 (Version None)
Quarter: 2011Q1

REPORT INFORMATION
  Report Type: 
  Country: None (occurrence: None)
  Receive Date: 20110311
  Receipt Date: 20110308
  Transmission Date: 20110831
  Serious: Yes (Death, Other)
  Sender: FDA-Public Use
  Company Number: PHHO2011US04422

PATIENT
  Sex: Male
  Weight: 76 kg

DRUGS (4)
  1. TYLENOL [Concomitant]
     Indication: BACK PAIN
  2. RESTASIS [Concomitant]
     Indication: DRY EYE
  3. AFINITOR [Suspect]
     Indication: METASTATIC RENAL CELL CARCINOMA
     Dosage: 10 MG / DAY
     Route: 048
     Dates: start: 20100415, end: 20100903
  4. MULTI-VITAMINS [Concomitant]

REACTIONS (2)
  - DEATH [None]
  - NEOPLASM MALIGNANT [None]
